FAERS Safety Report 5067610-2 (Version None)
Quarter: 2006Q3

REPORT INFORMATION
  Report Type: 
  Country: None (occurrence: None)
  Receive Date: 20060717
  Receipt Date: 20060406
  Transmission Date: 20061208
  Serious: Yes (Other)
  Sender: FDA-Public Use
  Company Number: 2006053939

PATIENT
  Age: 62 Year
  Sex: Male

DRUGS (1)
  1. MACUGEN [Suspect]
     Indication: ILL-DEFINED DISORDER
     Dosage: INTRAVENOUS
     Route: 042

REACTIONS (1)
  - DRUG INEFFECTIVE [None]
